FAERS Safety Report 6929342-2 (Version None)
Quarter: 2010Q3

REPORT INFORMATION
  Report Type: 
  Country: None (occurrence: None)
  Receive Date: 20100818
  Receipt Date: 20100805
  Transmission Date: 20110219
  Serious: Yes (Hospitalization)
  Sender: FDA-Public Use
  Company Number: US-JNJFOC-20100803757

PATIENT
  Age: 29 Year
  Sex: Female
  Weight: 37.2 kg

DRUGS (4)
  1. MYLANTA [Suspect]
     Indication: PRODUCT USED FOR UNKNOWN INDICATION
     Route: 065
  2. ROLAIDS [Suspect]
     Indication: PRODUCT USED FOR UNKNOWN INDICATION
     Route: 065
  3. ASPIRIN [Suspect]
     Indication: PRODUCT USED FOR UNKNOWN INDICATION
     Dosage: 8-12 TABLETS PER DAY
     Route: 065
  4. ALKA SELTZER [Suspect]
     Indication: PRODUCT USED FOR UNKNOWN INDICATION
     Dosage: NO MORE THAN 4 TABLETS PER DAY
     Route: 065

REACTIONS (1)
  - THERAPEUTIC AGENT TOXICITY [None]
